FAERS Safety Report 10366101 (Version 1)
Quarter: 2014Q1

REPORT INFORMATION
  Report Type: Spontaneous
  Country: US (occurrence: None)
  Receive Date: 20140306
  Receipt Date: 20140306
  Transmission Date: 20141002
  Serious: Yes (Other)
  Sender: FDA-Public Use
  Company Number: 163-21880-13030178

PATIENT
  Age: 80 Year
  Sex: Female

DRUGS (9)
  1. REVLIMID [Suspect]
     Indication: PLASMA CELL MYELOMA
     Route: 048
     Dates: start: 20120824
  2. ADVAIR DISKUS [Concomitant]
  3. ALBUTEROL SULFATE (SALBUTAMOL SULFATE) [Concomitant]
  4. CLARITIN (LORATADINE) [Concomitant]
  5. DEXAMETHASONE (DEXAMETHASONE) [Concomitant]
  6. DIOVAN HCT (CO-DIOVAN) [Concomitant]
  7. DITROPAN XL (OXYBUTYNIN HYDROCHLORIDE) [Concomitant]
  8. DOXEPIN HCL (DOXEPIN HYDROCHLORIDE) [Concomitant]
  9. FENTANYL (FENTANYL) [Concomitant]

REACTIONS (1)
  - Red blood cell count decreased [None]
